FAERS Safety Report 4797286-0 (Version None)
Quarter: 2005Q4

REPORT INFORMATION
  Report Type: 
  Country: None (occurrence: None)
  Receive Date: 20051013
  Receipt Date: 20050907
  Transmission Date: 20060501
  Serious: Yes (Death, Hospitalization)
  Sender: FDA-Public Use
  Company Number: KE-GLAXOSMITHKLINE-B0393124A

PATIENT
  Age: 13 Month
  Sex: Male

DRUGS (2)
  1. COMBIVIR [Suspect]
     Indication: ANTIVIRAL PROPHYLAXIS
  2. NEVIRAPINE [Suspect]
     Indication: ANTIVIRAL PROPHYLAXIS

REACTIONS (10)
  - ANAEMIA [None]
  - DEATH [None]
  - DIARRHOEA [None]
  - DRUG EXPOSURE DURING PREGNANCY [None]
  - GASTROENTERITIS [None]
  - MALARIA [None]
  - MALNUTRITION [None]
  - PNEUMONIA [None]
  - WEIGHT DECREASED [None]
  - WEIGHT GAIN POOR [None]
